FAERS Safety Report 10289886 (Version 2)
Quarter: 2014Q3

REPORT INFORMATION
  Report Type: Spontaneous
  Country: JP (occurrence: JP)
  Receive Date: 20140710
  Receipt Date: 20140710
  Transmission Date: 20150326
  Serious: Yes (Other)
  Sender: FDA-Public Use
  Company Number: JP-AMGEN-JPNSP2014045907

PATIENT
  Age: 9 Decade
  Sex: Male

DRUGS (5)
  1. ALIMTA [Suspect]
     Active Substance: PEMETREXED DISODIUM
     Indication: PRODUCT USED FOR UNKNOWN INDICATION
     Route: 065
  2. RANMARK [Suspect]
     Active Substance: DENOSUMAB
     Indication: METASTASES TO BONE
     Dosage: 120 MG, UNK
     Route: 058
  3. CISPLATIN. [Concomitant]
     Active Substance: CISPLATIN
     Dosage: UNK
     Route: 065
  4. RANMARK [Suspect]
     Active Substance: DENOSUMAB
     Indication: BONE LESION
  5. RANMARK [Suspect]
     Active Substance: DENOSUMAB
     Indication: LUNG NEOPLASM MALIGNANT

REACTIONS (1)
  - Interstitial lung disease [Recovering/Resolving]
